FAERS Safety Report 25104603 (Version 1)
Quarter: 2025Q1

REPORT INFORMATION
  Report Type: Spontaneous
  Country: US (occurrence: None)
  Receive Date: 20250320
  Receipt Date: 20250320
  Transmission Date: 20250409
  Serious: Yes (Other)
  Sender: FDA-CTU
  Company Number: None

PATIENT
  Age: 53 Year
  Sex: Female
  Weight: 91.8 kg

DRUGS (5)
  1. METHACHOLINE [Suspect]
     Active Substance: METHACHOLINE
     Indication: Asthma
     Dates: start: 20250318, end: 20250318
  2. DEVICE [Concomitant]
     Active Substance: DEVICE
  3. VITAMINS [Concomitant]
     Active Substance: VITAMINS
  4. ZYRTEC [Concomitant]
     Active Substance: CETIRIZINE HYDROCHLORIDE
  5. ALBUTEROL [Concomitant]
     Active Substance: ALBUTEROL

REACTIONS (9)
  - Head discomfort [None]
  - Ocular discomfort [None]
  - Dizziness [None]
  - Feeling jittery [None]
  - Fatigue [None]
  - Asthenia [None]
  - Pain [None]
  - Muscular weakness [None]
  - Nausea [None]

NARRATIVE: CASE EVENT DATE: 20250318
